FAERS Safety Report 10187113 (Version 12)
Quarter: 2015Q1

REPORT INFORMATION
  Report Type: Report from Study
  Country: CA (occurrence: CA)
  Receive Date: 20140522
  Receipt Date: 20150310
  Transmission Date: 20150720
  Serious: Yes (Other)
  Sender: FDA-Public Use
  Company Number: CA-ALEXION PHARMACEUTICALS INC.-A201401015

PATIENT

DRUGS (44)
  1. SOLIRIS [Suspect]
     Active Substance: ECULIZUMAB
     Dosage: 900 MG, Q2W
     Route: 042
     Dates: start: 20101228
  2. NOVO-CLONIDINE [Concomitant]
     Indication: HYPERTENSION
     Dosage: 1.25 MG, QD
     Route: 048
     Dates: start: 20131031, end: 201401
  3. CALCIUM [Concomitant]
     Active Substance: CALCIUM
     Indication: PRODUCT USED FOR UNKNOWN INDICATION
     Dosage: 300 MG, TID
     Route: 048
  4. NASONEX [Concomitant]
     Active Substance: MOMETASONE FUROATE
     Indication: SINUSITIS
     Dosage: 2 SPRAYS/NOSTRIL, QD
     Route: 045
     Dates: start: 20130314
  5. DYCHOLIUM                          /00151201/ [Concomitant]
     Indication: BILE OUTPUT
     Dosage: 300 MG, QD PRN
     Route: 048
     Dates: start: 201308
  6. SOLIRIS [Suspect]
     Active Substance: ECULIZUMAB
     Dosage: 900 MG, Q2W
     Route: 042
     Dates: start: 20101228
  7. GENACOL                            /00724201/ [Concomitant]
     Indication: SUPPLEMENTATION THERAPY
     Dosage: 2 DF, QD
     Route: 048
     Dates: start: 20120410
  8. PENICILLIN                         /00000901/ [Concomitant]
     Active Substance: PENICILLIN
     Dosage: 600 MG, BID
     Route: 048
     Dates: start: 20130106, end: 20130108
  9. ROBITUSSIN (GUAIFENESIN) [Concomitant]
     Active Substance: GUAIFENESIN
     Indication: PRODUCT USED FOR UNKNOWN INDICATION
     Dosage: UNK, QHS
     Route: 048
     Dates: start: 20130104
  10. AMOXICILLIN. [Concomitant]
     Active Substance: AMOXICILLIN
     Indication: SINUSITIS
     Dosage: 500 MG, TID
     Route: 048
     Dates: start: 20130111, end: 20130125
  11. SOLIRIS [Suspect]
     Active Substance: ECULIZUMAB
     Indication: PAROXYSMAL NOCTURNAL HAEMOGLOBINURIA
     Dosage: 600 MG, QW
     Route: 042
     Dates: start: 20101201, end: 20101222
  12. SOLIRIS [Suspect]
     Active Substance: ECULIZUMAB
     Dosage: 900 MG, Q2W
     Route: 042
     Dates: start: 20101228
  13. BEXSERO [Suspect]
     Active Substance: MENINGOCOCCAL GROUP B VACCINE
     Dosage: UNK, SINGLE
     Route: 065
     Dates: start: 20140710, end: 20140710
  14. COUMADIN [Concomitant]
     Active Substance: WARFARIN SODIUM
     Indication: PROPHYLAXIS
     Dosage: 2 MG, QD
     Route: 048
     Dates: start: 20090901, end: 201412
  15. EURO FOLIC [Concomitant]
     Indication: PAROXYSMAL NOCTURNAL HAEMOGLOBINURIA
  16. CLONIDINE. [Concomitant]
     Active Substance: CLONIDINE
     Indication: HYPERTENSION
     Dosage: 0.05 MG, BID
     Route: 048
     Dates: start: 20090930, end: 20131030
  17. CORTISONE [Concomitant]
     Active Substance: CORTISONE\HYDROCORTISONE
     Indication: PAIN IN EXTREMITY
     Dosage: 1 DF, SINGLE
     Route: 065
     Dates: start: 20120502, end: 20120502
  18. TYLENOL WITH CODEINE [Concomitant]
     Active Substance: ACETAMINOPHEN\CODEINE PHOSPHATE
     Indication: PAIN
     Dosage: 1-2 TABS QHS
     Route: 048
  19. ARTIS PLUS [Concomitant]
     Indication: MYALGIA
     Dosage: UNK, PRN
     Route: 061
  20. CHLOROPHYLL [Concomitant]
     Indication: PRODUCT USED FOR UNKNOWN INDICATION
     Dosage: UNK
     Route: 065
     Dates: start: 201502
  21. CALCIUM W/MAGNESIUM/VITAMIN D [Concomitant]
     Indication: SUPPLEMENTATION THERAPY
     Dosage: 2 DF, QD
     Route: 048
     Dates: start: 20120410
  22. TYLENOL [Concomitant]
     Active Substance: ACETAMINOPHEN
     Indication: PYREXIA
     Dosage: 500 MG, PRN
     Route: 048
  23. PENICILLIN                         /00000901/ [Concomitant]
     Active Substance: PENICILLIN
     Indication: PROPHYLAXIS
     Dosage: 600 MG, BID
     Route: 048
     Dates: start: 20120806, end: 20120920
  24. SALINEX                            /00075401/ [Concomitant]
     Indication: RHINORRHOEA
     Dosage: UNK, PRN
     Route: 045
     Dates: start: 20121203
  25. AMOXICILLIN AND CLAVULANATE POTASSIUM [Concomitant]
     Active Substance: AMOXICILLIN\CLAVULANATE POTASSIUM
     Indication: SINUSITIS
     Dosage: 875-125 MG, BID
     Route: 048
     Dates: start: 20130302, end: 20130312
  26. APO SULFAPRIM DS [Concomitant]
     Indication: PROPHYLAXIS
     Dosage: 800MG-160MG, QD
     Route: 048
     Dates: start: 20141004
  27. FRAGMIN [Suspect]
     Active Substance: DALTEPARIN SODIUM
     Indication: INTERNATIONAL NORMALISED RATIO DECREASED
     Dosage: UNK
     Route: 058
     Dates: start: 20140924
  28. NOVO-CLONIDINE [Concomitant]
     Dosage: 0.625 MG,QD
     Route: 048
     Dates: start: 201401
  29. TYLENOL [Concomitant]
     Active Substance: ACETAMINOPHEN
     Indication: HEADACHE
  30. VITARUB [Concomitant]
     Indication: PAIN IN EXTREMITY
     Dosage: UNK, PRN
     Route: 065
     Dates: start: 201110
  31. ARTECHOL [Concomitant]
     Indication: BILE OUTPUT
     Dosage: 1 DF, PRN
     Route: 048
  32. SOLIRIS [Suspect]
     Active Substance: ECULIZUMAB
     Dosage: 900 MG, Q2W
     Route: 042
     Dates: start: 20101228
  33. BEXSERO [Suspect]
     Active Substance: MENINGOCOCCAL GROUP B VACCINE
     Indication: PROPHYLAXIS
     Dosage: UNK, SINGLE
     Route: 065
     Dates: start: 20140610, end: 20140610
  34. EURO FOLIC [Concomitant]
     Indication: SUPPLEMENTATION THERAPY
     Dosage: 5 MG, QW
     Route: 048
     Dates: start: 20110608
  35. TYLENOL [Concomitant]
     Active Substance: ACETAMINOPHEN
     Indication: PAIN
  36. CELEBREX [Concomitant]
     Active Substance: CELECOXIB
     Indication: PAIN IN EXTREMITY
     Dosage: 200 MG, BID
     Route: 048
     Dates: start: 20111020, end: 20111119
  37. RHINARIS                           /00678601/ [Concomitant]
     Indication: PRODUCT USED FOR UNKNOWN INDICATION
     Dosage: UNK, BID
     Route: 065
     Dates: start: 20120320
  38. PROBIOPHILUS [Concomitant]
     Indication: SUPPLEMENTATION THERAPY
     Dosage: 4.4 MILLIARDS QD
     Route: 048
     Dates: start: 20120410
  39. NEILMED SINUS RINSE [Concomitant]
     Indication: SINUSITIS
     Dosage: UNK, PRN
     Route: 045
     Dates: start: 20130317
  40. PROTYLOL [Concomitant]
     Indication: PRODUCT USED FOR UNKNOWN INDICATION
     Dosage: 20 MG, Q 6 HR PRN
     Route: 048
  41. VITAMIN D                          /00107901/ [Concomitant]
     Active Substance: ERGOCALCIFEROL
     Indication: NUTRITIONAL SUPPLEMENTATION
     Dosage: 1000 IU, QD
     Route: 048
  42. VITAMINS WITH MINERALS [Concomitant]
     Active Substance: MINERALS\VITAMINS
     Indication: VITAMIN SUPPLEMENTATION
     Dosage: UNK, QD
     Route: 048
     Dates: start: 20100101
  43. NATURAL HERBAL PRODUCT [Concomitant]
     Indication: PROCTALGIA
     Dosage: PRN
     Route: 065
  44. COLACE [Concomitant]
     Active Substance: DOCUSATE SODIUM
     Indication: PRODUCT USED FOR UNKNOWN INDICATION
     Dosage: 2 DF, UNK
     Route: 065
     Dates: start: 201409

REACTIONS (35)
  - Vitreous detachment [Not Recovered/Not Resolved]
  - Asthenia [Not Recovered/Not Resolved]
  - Headache [Recovered/Resolved]
  - Pelvic pain [Not Recovered/Not Resolved]
  - Hepatic enzyme increased [Not Recovered/Not Resolved]
  - Palpitations [Not Recovered/Not Resolved]
  - Osteoarthritis [Not Recovered/Not Resolved]
  - Intra-abdominal haematoma [Not Recovered/Not Resolved]
  - Injection site pain [Not Recovered/Not Resolved]
  - Oropharyngeal pain [Not Recovered/Not Resolved]
  - Pain in extremity [Recovering/Resolving]
  - International normalised ratio decreased [Recovered/Resolved]
  - Nasal congestion [Not Recovered/Not Resolved]
  - Myalgia [Recovered/Resolved]
  - White blood cell count increased [Unknown]
  - Joint dislocation [Recovering/Resolving]
  - Pain [Recovering/Resolving]
  - Cough [Not Recovered/Not Resolved]
  - Headache [Recovered/Resolved]
  - Constipation [Not Recovered/Not Resolved]
  - Sinusitis [Unknown]
  - White blood cell count decreased [Not Recovered/Not Resolved]
  - International normalised ratio fluctuation [Not Recovered/Not Resolved]
  - Sinus headache [Not Recovered/Not Resolved]
  - Contusion [Recovered/Resolved]
  - Epistaxis [Recovered/Resolved]
  - Epistaxis [Not Recovered/Not Resolved]
  - Pyrexia [Recovered/Resolved]
  - Headache [Not Recovered/Not Resolved]
  - Epicondylitis [Recovering/Resolving]
  - Headache [Not Recovered/Not Resolved]
  - Pain in extremity [Recovered/Resolved]
  - Injection site pain [Recovered/Resolved]
  - Pyrexia [Recovered/Resolved]
  - Headache [Recovered/Resolved]

NARRATIVE: CASE EVENT DATE: 2014
